FAERS Safety Report 6851226-9 (Version None)
Quarter: 2010Q3

REPORT INFORMATION
  Report Type: 
  Country: None (occurrence: None)
  Receive Date: 20100716
  Receipt Date: 20100705
  Transmission Date: 20110219
  Serious: Yes (Hospitalization)
  Sender: FDA-Public Use
  Company Number: PHHY2010BR44349

PATIENT
  Age: 61 Year
  Sex: Male
  Weight: 94 kg

DRUGS (5)
  1. SANDIMMUNE [Suspect]
     Indication: RENAL TRANSPLANT
     Dosage: 25 AND 50MG 1 CAPSULE BID
     Route: 048
  2. METICORTEN [Suspect]
     Indication: RENAL TRANSPLANT
     Dosage: 10 MG, QD
     Route: 048
  3. FUROSEMID [Suspect]
     Indication: RENAL TRANSPLANT
     Dosage: 160 MG, QD
     Route: 048
  4. ALOPURINOL [Concomitant]
     Indication: RENAL TRANSPLANT
     Dosage: 300 MG, QD
     Route: 048
  5. SISTEC [Suspect]
     Indication: RENAL TRANSPLANT
     Dosage: 500 MG, BID

REACTIONS (5)
  - IATROGENIC INJURY [None]
  - LIMB INJURY [None]
  - PARALYSIS [None]
  - WOUND DRAINAGE [None]
  - WOUND INFECTION [None]
